FAERS Safety Report 20323084 (Version 1)
Quarter: 2022Q1

REPORT INFORMATION
  Report Type: Report from Study
  Country: US (occurrence: US)
  Receive Date: 20220111
  Receipt Date: 20220111
  Transmission Date: 20220423
  Serious: Yes (Death)
  Sender: FDA-Public Use
  Company Number: US-PFIZER INC-202200009766

PATIENT

DRUGS (3)
  1. GEMCITABINE HYDROCHLORIDE [Suspect]
     Active Substance: GEMCITABINE HYDROCHLORIDE
     Indication: Transitional cell carcinoma
     Dosage: ON DAYS 1 AND 8, RECEIVE UP TO SIX CYCLES OF CHEMOTHERAPY
     Route: 042
  2. CISPLATIN [Suspect]
     Active Substance: CISPLATIN
     Indication: Transitional cell carcinoma
     Dosage: ON DAY 1 EVERY 21 DAYS, RECEIVE UP TO SIX CYCLES OF CHEMOTHERAPY
     Route: 042
  3. PLACEBO [Suspect]
     Active Substance: UNSPECIFIED INGREDIENT
     Indication: Transitional cell carcinoma
     Dosage: EVERY 21 DAYS STARTING FROM DAY 1 OF CHEMOTHERAPY

REACTIONS (1)
  - Sudden death [Fatal]
